FAERS Safety Report 15987110 (Version 5)
Quarter: 2019Q3

REPORT INFORMATION
  Report Type: Spontaneous
  Country: US (occurrence: US)
  Receive Date: 20190220
  Receipt Date: 20190926
  Transmission Date: 20191004
  Serious: Yes (Other)
  Sender: FDA-Public Use
  Company Number: PHEH2019US007773

PATIENT
  Sex: Female
  Weight: 45.35 kg

DRUGS (3)
  1. ONDANSETRON [Suspect]
     Active Substance: ONDANSETRON
     Indication: MORNING SICKNESS
     Dosage: 04 MG, Q6H
     Route: 048
     Dates: start: 20150626, end: 20150901
  2. ZOFRAN [Suspect]
     Active Substance: ONDANSETRON HYDROCHLORIDE
     Indication: PRODUCT USED FOR UNKNOWN INDICATION
     Dosage: 04 MG, Q8H
     Route: 048
  3. ZOFRAN ODT [Suspect]
     Active Substance: ONDANSETRON HYDROCHLORIDE
     Indication: PRODUCT USED FOR UNKNOWN INDICATION
     Route: 048

REACTIONS (9)
  - Injury [Unknown]
  - Product use issue [Unknown]
  - Abdominal pain upper [Unknown]
  - Pre-eclampsia [Unknown]
  - Abdominal pain [Unknown]
  - Gastroenteritis [Unknown]
  - Maternal exposure during pregnancy [Unknown]
  - Burning sensation [Unknown]
  - Anxiety [Unknown]
